FAERS Safety Report 24576993 (Version 1)
Quarter: 2024Q4

REPORT INFORMATION
  Report Type: Spontaneous
  Country: DE (occurrence: DE)
  Receive Date: 20241104
  Receipt Date: 20241104
  Transmission Date: 20250115
  Serious: Yes (Other)
  Sender: PFIZER
  Company Number: None

PATIENT
  Age: 79 Year
  Sex: Male
  Weight: 80 kg

DRUGS (2)
  1. AZITHROMYCIN [Suspect]
     Active Substance: AZITHROMYCIN
     Indication: Atypical pneumonia
     Dosage: 500 MG, 1X/DAY
     Route: 048
     Dates: start: 20241011, end: 20241013
  2. AZITHROMYCIN [Suspect]
     Active Substance: AZITHROMYCIN
     Indication: Mycoplasma infection

REACTIONS (4)
  - Ototoxicity [Recovering/Resolving]
  - Hypoacusis [Recovering/Resolving]
  - Presbyacusis [Unknown]
  - Condition aggravated [Unknown]

NARRATIVE: CASE EVENT DATE: 20241013
